FAERS Safety Report 6290963-4 (Version None)
Quarter: 2009Q3

REPORT INFORMATION
  Report Type: 
  Country: None (occurrence: None)
  Receive Date: 20090729
  Receipt Date: 20090729
  Transmission Date: 20100115
  Serious: Yes (Hospitalization)
  Sender: FDA-Public Use
  Company Number: None

PATIENT
  Sex: Male
  Weight: 71.2 kg

DRUGS (2)
  1. CARBOPLATIN [Suspect]
     Dosage: 1266 MG
  2. TAXOL [Suspect]
     Dosage: 486 MG

REACTIONS (13)
  - ANXIETY [None]
  - BLOOD SODIUM DECREASED [None]
  - COLLAPSE OF LUNG [None]
  - CONFUSIONAL STATE [None]
  - DECREASED APPETITE [None]
  - HAEMATOCRIT DECREASED [None]
  - HYPOPHAGIA [None]
  - INSOMNIA [None]
  - PNEUMONIA [None]
  - REFUSAL OF TREATMENT BY PATIENT [None]
  - SPUTUM CULTURE POSITIVE [None]
  - STENOTROPHOMONAS INFECTION [None]
  - TACHYPNOEA [None]
